FAERS Safety Report 17766053 (Version 1)
Quarter: 2020Q2

REPORT INFORMATION
  Report Type: Spontaneous
  Country: US (occurrence: US)
  Receive Date: 20200511
  Receipt Date: 20200511
  Transmission Date: 20200714
  Serious: No
  Sender: FDA-Public Use
  Company Number: US-009507513-2004USA004087

PATIENT
  Age: 75 Year
  Sex: Female

DRUGS (1)
  1. DECADRON [Suspect]
     Active Substance: DEXAMETHASONE
     Indication: PRODUCT USED FOR UNKNOWN INDICATION
     Dosage: UNK
     Route: 048
     Dates: start: 201810, end: 201910

REACTIONS (3)
  - Oedema peripheral [Not Recovered/Not Resolved]
  - Irritability [Not Recovered/Not Resolved]
  - Mental status changes [Not Recovered/Not Resolved]
